FAERS Safety Report 17259057 (Version 5)
Quarter: 2024Q2

REPORT INFORMATION
  Report Type: Spontaneous
  Country: US (occurrence: US)
  Receive Date: 20200110
  Receipt Date: 20240416
  Transmission Date: 20240715
  Serious: Yes (Other)
  Sender: FDA-Public Use
  Company Number: US-PFIZER INC-2020010610

PATIENT
  Age: 59 Year
  Sex: Female

DRUGS (1)
  1. XELJANZ XR [Suspect]
     Active Substance: TOFACITINIB CITRATE
     Dosage: 11 MG

REACTIONS (7)
  - Staphylococcal infection [Unknown]
  - Furuncle [Unknown]
  - Infection [Unknown]
  - Pain in extremity [Unknown]
  - Urinary tract infection [Unknown]
  - Sinus disorder [Unknown]
  - Pain [Unknown]

NARRATIVE: CASE EVENT DATE: 20210426
